FAERS Safety Report 20140330 (Version 1)
Quarter: 2021Q4

REPORT INFORMATION
  Report Type: Spontaneous
  Country: DE (occurrence: DE)
  Receive Date: 20211202
  Receipt Date: 20211202
  Transmission Date: 20220303
  Serious: Yes (Life-Threatening, Other)
  Sender: FDA-Public Use
  Company Number: DE-DCGMA-21189958

PATIENT
  Age: 73 Year
  Sex: Female
  Weight: 69 kg

DRUGS (8)
  1. AMIODARONE [Suspect]
     Active Substance: AMIODARONE
     Indication: Atrial fibrillation
     Dosage: 15 MG/KG DAILY; DAILY DOSE: 15 MG/KG MILLIGRAM(S)/KILOGRAM EVERY DAYS,ADDITIONAL INFORMATION:APRIL 3
     Route: 042
  2. Sodium glycerol phosphate [Concomitant]
     Indication: Dialysis
     Route: 042
  3. MEROPENEM [Concomitant]
     Active Substance: MEROPENEM
     Indication: Atrial fibrillation
     Dosage: ADDITIONAL INFORMATION:2X 1G OVER 3 HOURS
     Route: 042
     Dates: start: 20210430
  4. CLONIDINE [Concomitant]
     Active Substance: CLONIDINE
     Indication: Sedation
     Route: 042
  5. SUFENTANIL [Concomitant]
     Active Substance: SUFENTANIL
     Indication: Sedation
     Route: 042
  6. SULFAMETHOXAZOLE\TRIMETHOPRIM [Concomitant]
     Active Substance: SULFAMETHOXAZOLE\TRIMETHOPRIM
     Indication: Stenotrophomonas infection
     Dosage: 960MILLIGRAM
     Route: 042
     Dates: start: 20210425
  7. METOPROLOL [Concomitant]
     Active Substance: METOPROLOL
     Indication: Atrial fibrillation
     Dosage: 15MG/KG
     Route: 042
     Dates: start: 20210430
  8. NOREPINEPHRINE HYDROCHLORIDE, (+/-)- [Concomitant]
     Active Substance: NOREPINEPHRINE HYDROCHLORIDE, (+/-)-
     Route: 042
     Dates: end: 20210503

REACTIONS (1)
  - Acute hepatic failure [Not Recovered/Not Resolved]

NARRATIVE: CASE EVENT DATE: 20210501
